FAERS Safety Report 13941471 (Version 2)
Quarter: 2017Q3

REPORT INFORMATION
  Report Type: Spontaneous
  Country: BR (occurrence: BR)
  Receive Date: 20170906
  Receipt Date: 20170912
  Transmission Date: 20171127
  Serious: Yes (Other)
  Sender: FDA-Public Use
  Company Number: BR-AMGEN-BRASP2017132188

PATIENT
  Age: 46 Year
  Sex: Female
  Weight: 90 kg

DRUGS (2)
  1. PROLIA [Suspect]
     Active Substance: DENOSUMAB
     Indication: BONE GIANT CELL TUMOUR BENIGN
     Dosage: UNK
     Route: 065
  2. PROLIA [Suspect]
     Active Substance: DENOSUMAB
     Indication: METASTASES TO BONE

REACTIONS (4)
  - Off label use [Unknown]
  - Neoplasm progression [Not Recovered/Not Resolved]
  - Arthralgia [Unknown]
  - Metastasis [Not Recovered/Not Resolved]
